FAERS Safety Report 4422268-8 (Version None)
Quarter: 2004Q3

REPORT INFORMATION
  Report Type: 
  Country: None (occurrence: None)
  Receive Date: 20040810
  Receipt Date: 20040629
  Transmission Date: 20050211
  Serious: Yes (Hospitalization, Disabling)
  Sender: FDA-Public Use
  Company Number: JP-MERCK-0407USA00063

PATIENT
  Age: 82 Year
  Sex: Female

DRUGS (3)
  1. CEFTAZIDIME [Concomitant]
     Indication: PNEUMONIA
     Route: 042
     Dates: start: 20040416, end: 20040422
  2. PRIMAXIN [Suspect]
     Indication: PNEUMONIA
     Route: 041
     Dates: start: 20040422, end: 20040505
  3. PENTCILLIN [Suspect]
     Indication: PNEUMONIA
     Route: 042
     Dates: start: 20040408, end: 20040415

REACTIONS (1)
  - INTERSTITIAL LUNG DISEASE [None]
